FAERS Safety Report 15242128 (Version 3)
Quarter: 2018Q3

REPORT INFORMATION
  Report Type: Spontaneous
  Country: US (occurrence: US)
  Receive Date: 20180806
  Receipt Date: 20180910
  Transmission Date: 20181010
  Serious: Yes (Life-Threatening, Hospitalization)
  Sender: FDA-Public Use
  Company Number: PHEH2018US030972

PATIENT
  Age: 17 Year
  Sex: Male
  Weight: 83 kg

DRUGS (1)
  1. KYMRIAH [Suspect]
     Active Substance: TISAGENLECLEUCEL
     Indication: ACUTE LYMPHOCYTIC LEUKAEMIA RECURRENT
     Dosage: 1.2^8 CELLS CAR POSITIVE VIABLE CELLS
     Route: 042
     Dates: start: 20180709

REACTIONS (19)
  - C-reactive protein increased [Recovering/Resolving]
  - Neurotoxicity [Recovered/Resolved]
  - Hypotension [Recovering/Resolving]
  - Tachycardia [Unknown]
  - Capillary disorder [Recovering/Resolving]
  - Neutropenia [Not Recovered/Not Resolved]
  - Coagulopathy [Recovering/Resolving]
  - Headache [Recovered/Resolved]
  - Anxiety [Recovered/Resolved]
  - Cytokine release syndrome [Recovering/Resolving]
  - Pyrexia [Recovered/Resolved]
  - Oedema peripheral [Unknown]
  - Liver function test increased [Recovering/Resolving]
  - Cognitive disorder [Recovered/Resolved]
  - Nausea [Unknown]
  - Serum ferritin increased [Recovering/Resolving]
  - Erythema [Unknown]
  - Mental status changes [Unknown]
  - Pulmonary oedema [Unknown]

NARRATIVE: CASE EVENT DATE: 20180702
